FAERS Safety Report 23435619 (Version 1)
Quarter: 2024Q1

REPORT INFORMATION
  Report Type: Spontaneous
  Country: CN (occurrence: CN)
  Receive Date: 20240124
  Receipt Date: 20240124
  Transmission Date: 20240410
  Serious: Yes (Other)
  Sender: FDA-Public Use
  Company Number: CN-JNJFOC-20240145232

PATIENT
  Age: 23 Year
  Sex: Male
  Weight: 113 kg

DRUGS (1)
  1. RISPERDAL [Suspect]
     Active Substance: RISPERIDONE
     Indication: Psychiatric symptom
     Dosage: 2.5 ML TWICE DAILY
     Route: 048
     Dates: start: 20231222, end: 20240105

REACTIONS (2)
  - Blood uric acid increased [Unknown]
  - Off label use [Unknown]

NARRATIVE: CASE EVENT DATE: 20231222
